FAERS Safety Report 5661745-9 (Version None)
Quarter: 2008Q1

REPORT INFORMATION
  Report Type: 
  Country: None (occurrence: None)
  Receive Date: 20080312
  Receipt Date: 20080227
  Transmission Date: 20080703
  Serious: Yes (Hospitalization)
  Sender: FDA-Public Use
  Company Number: JP-GENENTECH-257172

PATIENT
  Sex: Male

DRUGS (4)
  1. BEVACIZUMAB [Suspect]
     Indication: RECTAL CANCER RECURRENT
     Dosage: 10 MG/KG, QD
     Route: 042
     Dates: start: 20070912
  2. OXALIPLATIN [Suspect]
     Indication: RECTAL CANCER RECURRENT
     Dosage: 81 MG/M2, QD
     Route: 042
     Dates: start: 20070912
  3. FLUOROURACIL [Suspect]
     Indication: RECTAL CANCER RECURRENT
     Dosage: 388 MG/M2, QD
     Route: 042
     Dates: start: 20070912
  4. ISOVORIN [Suspect]
     Indication: RECTAL CANCER RECURRENT
     Dosage: 93 MG/M2, QD
     Route: 042
     Dates: start: 20070912

REACTIONS (1)
  - HYPOAESTHESIA [None]
